FAERS Safety Report 13704881 (Version 1)
Quarter: 2017Q2

REPORT INFORMATION
  Report Type: Spontaneous
  Country: SI (occurrence: SI)
  Receive Date: 20170630
  Receipt Date: 20170630
  Transmission Date: 20170830
  Serious: Yes (Hospitalization)
  Sender: FDA-Public Use
  Company Number: PHHY2017SI095459

PATIENT
  Age: 37 Year
  Sex: Female

DRUGS (4)
  1. TEGRETOL [Suspect]
     Active Substance: CARBAMAZEPINE
     Indication: EPILEPSY
     Dosage: 400 MG, QD
     Route: 048
     Dates: start: 201511, end: 201601
  2. TEGRETOL [Suspect]
     Active Substance: CARBAMAZEPINE
     Dosage: 200 MG MNG, 3X43 MG IN DAY POWDER RECONSTITUTED TO ORAL SUSPENSION, 200 MG EVENING
     Route: 048
     Dates: start: 201611, end: 201611
  3. TEGRETOL [Suspect]
     Active Substance: CARBAMAZEPINE
     Dosage: 600 UNK, UNK
     Route: 048
     Dates: start: 201602, end: 201611
  4. TEGRETOL [Suspect]
     Active Substance: CARBAMAZEPINE
     Dosage: 500 UNK, UNK
     Route: 048
     Dates: start: 201601, end: 201602

REACTIONS (10)
  - Coordination abnormal [Not Recovered/Not Resolved]
  - Epilepsy [Recovered/Resolved]
  - Dysgeusia [Not Recovered/Not Resolved]
  - Epilepsy [Recovered/Resolved]
  - Blood prolactin increased [Not Recovered/Not Resolved]
  - Hair growth abnormal [Not Recovered/Not Resolved]
  - Heart rate increased [Not Recovered/Not Resolved]
  - Asthenia [Not Recovered/Not Resolved]
  - Acne [Not Recovered/Not Resolved]
  - Tension [Not Recovered/Not Resolved]

NARRATIVE: CASE EVENT DATE: 201511
